FAERS Safety Report 6402758-9 (Version None)
Quarter: 2009Q4

REPORT INFORMATION
  Report Type: 
  Country: None (occurrence: None)
  Receive Date: 20091016
  Receipt Date: 20091007
  Transmission Date: 20100525
  Serious: Yes (Other)
  Sender: FDA-Public Use
  Company Number: RU-RANBAXY-2009R3-28496

PATIENT

DRUGS (3)
  1. CIPROFLOXACIN + TINIDAZOLE [Suspect]
     Indication: PERIOSTITIS
     Dosage: 1000 MG + 1200 MG QD
     Route: 048
     Dates: start: 20090915, end: 20090922
  2. LINCOMYCIN HCL [Concomitant]
     Indication: DRUG USE FOR UNKNOWN INDICATION
     Dosage: 500 MG, UNK
     Route: 065
  3. METRONIDAZOLE [Concomitant]
     Indication: DRUG USE FOR UNKNOWN INDICATION
     Dosage: 2 TABLETS OF 0.25 MG, TID
     Route: 065

REACTIONS (1)
  - DRUG INEFFECTIVE [None]
